FAERS Safety Report 4823423-5 (Version None)
Quarter: 2005Q4

REPORT INFORMATION
  Report Type: 
  Country: None (occurrence: None)
  Receive Date: 20051107
  Receipt Date: 20051024
  Transmission Date: 20060501
  Serious: Yes (Death, Hospitalization, Other)
  Sender: FDA-Public Use
  Company Number: 10053

PATIENT
  Age: 88 Year
  Sex: Female

DRUGS (12)
  1. METHOTREXATE [Suspect]
     Indication: RHEUMATOID ARTHRITIS
     Dosage: 10 MG WEEKLY PO
     Route: 048
     Dates: end: 20041230
  2. FOSAMAX [Concomitant]
  3. LANSOPRAZOLE [Concomitant]
  4. HYDROCORTISONE [Concomitant]
  5. LEVOTHYROXINE SODIUM [Concomitant]
  6. INDAPAMIDE [Concomitant]
  7. PERINDOPRIL [Concomitant]
  8. DIDRONEL [Concomitant]
  9. ASPIRIN [Concomitant]
  10. FOLIC ACID [Concomitant]
  11. PREDNISOLONE [Concomitant]
  12. AMOXICILLIN [Concomitant]

REACTIONS (8)
  - ARRHYTHMIA [None]
  - FALL [None]
  - LOWER RESPIRATORY TRACT INFECTION [None]
  - MOBILITY DECREASED [None]
  - NEUTROPENIC SEPSIS [None]
  - ORAL INTAKE REDUCED [None]
  - PANCYTOPENIA [None]
  - SEPTIC SHOCK [None]
